FAERS Safety Report 19415706 (Version 2)
Quarter: 2021Q3

REPORT INFORMATION
  Report Type: Spontaneous
  Country: RO (occurrence: RO)
  Receive Date: 20210614
  Receipt Date: 20210701
  Transmission Date: 20211014
  Serious: Yes (Other)
  Sender: FDA-Public Use
  Company Number: RO-ROCHE-2846728

PATIENT
  Age: 74 Year
  Sex: Male

DRUGS (13)
  1. MEDROL [Concomitant]
     Active Substance: METHYLPREDNISOLONE
     Dates: start: 2017
  2. METHOTREXATE. [Concomitant]
     Active Substance: METHOTREXATE
     Dates: start: 2014
  3. SULPHASALAZINE [Concomitant]
     Active Substance: SULFASALAZINE
     Dates: start: 2014
  4. SULPHASALAZINE [Concomitant]
     Active Substance: SULFASALAZINE
     Dates: start: 2017
  5. LEFLUNOMIDE. [Concomitant]
     Active Substance: LEFLUNOMIDE
     Dates: start: 201912
  6. LEFLUNOMIDE. [Concomitant]
     Active Substance: LEFLUNOMIDE
     Dates: start: 2017
  7. TOCILIZUMAB. [Suspect]
     Active Substance: TOCILIZUMAB
     Indication: PRODUCT USED FOR UNKNOWN INDICATION
     Route: 058
     Dates: start: 20180901, end: 20190831
  8. LEFLUNOMIDE. [Concomitant]
     Active Substance: LEFLUNOMIDE
     Dates: start: 2019
  9. MEDROL [Concomitant]
     Active Substance: METHYLPREDNISOLONE
     Dates: start: 2019
  10. MABTHERA [Suspect]
     Active Substance: RITUXIMAB
     Indication: RHEUMATOID ARTHRITIS
     Route: 065
  11. INFLIXIMAB [Concomitant]
     Active Substance: INFLIXIMAB
     Dates: start: 2017
  12. SULPHASALAZINE [Concomitant]
     Active Substance: SULFASALAZINE
     Dates: start: 2019
  13. LEFLUNOMIDE. [Concomitant]
     Active Substance: LEFLUNOMIDE
     Dates: start: 2014

REACTIONS (9)
  - Cough [Unknown]
  - Pulmonary fibrosis [Unknown]
  - Tenosynovitis [Unknown]
  - Bronchiectasis [Unknown]
  - Lung disorder [Unknown]
  - Interstitial lung disease [Unknown]
  - Rheumatoid arthritis [Unknown]
  - Dyspnoea [Unknown]
  - Cyanosis [Unknown]

NARRATIVE: CASE EVENT DATE: 201902
